FAERS Safety Report 9511141 (Version 1)
Quarter: 2013Q1

REPORT INFORMATION
  Report Type: Spontaneous
  Country: US (occurrence: None)
  Receive Date: 20130305
  Receipt Date: 20130305
  Transmission Date: 20140127
  Serious: Yes (Other)
  Sender: FDA-Public Use
  Company Number: 163-21880-12122454

PATIENT
  Age: 82 Year
  Sex: Female

DRUGS (1)
  1. REVLIMID (LENALIDOMIDE) (15 MILLIGRAM, CAPSULES) [Suspect]
     Indication: PLASMA CELL MYELOMA
     Dosage: 15 MG, 21 IN 21 D, PO
     Route: 048
     Dates: start: 201108, end: 2011

REACTIONS (20)
  - Abdominal pain [None]
  - Infection [None]
  - Thrombocytopenia [None]
  - Full blood count decreased [None]
  - International normalised ratio increased [None]
  - Fatigue [None]
  - Contusion [None]
  - Diarrhoea [None]
  - Eye infection [None]
  - Herpes zoster [None]
  - Oedema peripheral [None]
  - Cellulitis [None]
  - Blood immunoglobulin G decreased [None]
  - Pallor [None]
  - Pneumonia [None]
  - Pyrexia [None]
  - Asthenia [None]
  - Cold sweat [None]
  - Malaise [None]
  - Cough [None]
